FAERS Safety Report 7657653-4 (Version None)
Quarter: 2011Q3

REPORT INFORMATION
  Report Type: 
  Country: None (occurrence: None)
  Receive Date: 20110804
  Receipt Date: 20110727
  Transmission Date: 20111222
  Serious: Yes (Other)
  Sender: FDA-Public Use
  Company Number: JP-AMGEN-JPNCT2011039169

PATIENT
  Age: 70 Year
  Sex: Male
  Weight: 52 kg

DRUGS (15)
  1. PANITUMUMAB [Suspect]
     Indication: COLORECTAL CANCER
     Dosage: 6 MG/KG, Q2WK
     Route: 041
     Dates: start: 20100622, end: 20100803
  2. LEUCOVORIN CALCIUM [Concomitant]
     Indication: COLORECTAL CANCER
     Route: 041
     Dates: start: 20100622, end: 20101130
  3. PANITUMUMAB [Suspect]
     Dosage: 6 MG/KG, Q2WK
     Route: 041
     Dates: start: 20101012, end: 20101102
  4. LAC B [Concomitant]
     Dosage: UNK
     Route: 048
  5. PANITUMUMAB [Suspect]
     Dosage: 6 MG/KG, Q2WK
     Route: 041
     Dates: start: 20101130, end: 20101130
  6. PANITUMUMAB [Suspect]
     Dosage: 6 MG/KG, Q2WK
     Route: 041
     Dates: start: 20100831, end: 20100831
  7. FLUOROURACIL [Concomitant]
     Indication: COLORECTAL CANCER
     Route: 040
     Dates: start: 20100622, end: 20101130
  8. FLUOROURACIL [Concomitant]
     Route: 041
     Dates: start: 20100622, end: 20101130
  9. DECADRON [Concomitant]
     Dosage: UNK
     Route: 042
  10. PANITUMUMAB [Suspect]
     Dosage: 300 MG, Q2WK
     Route: 041
     Dates: start: 20100914, end: 20100914
  11. OXALIPLATIN [Concomitant]
     Indication: COLORECTAL CANCER
     Route: 041
     Dates: start: 20100622, end: 20101130
  12. MINOCYCLINE HCL [Concomitant]
     Dosage: UNK
     Route: 048
  13. MUCOSTA [Concomitant]
     Dosage: UNK
     Route: 048
  14. KYTRIL [Concomitant]
     Dosage: UNK
     Route: 042
  15. CORTICOSTEROIDS [Concomitant]
     Indication: PROPHYLAXIS
     Dosage: UNK
     Route: 065

REACTIONS (3)
  - DRY SKIN [None]
  - MALAISE [None]
  - PIGMENTATION DISORDER [None]
